FAERS Safety Report 8192150-1 (Version None)
Quarter: 2012Q1

REPORT INFORMATION
  Report Type: 
  Country: None (occurrence: None)
  Receive Date: 20120307
  Receipt Date: 20120227
  Transmission Date: 20120608
  Serious: Yes (Other)
  Sender: FDA-Public Use
  Company Number: US-ASTRAZENECA-2010SE60266

PATIENT
  Age: 45 Year
  Sex: Female

DRUGS (1)
  1. CRESTOR [Suspect]
     Route: 048

REACTIONS (10)
  - NEUROPATHY PERIPHERAL [None]
  - BRONCHITIS [None]
  - CONVULSION [None]
  - CHRONIC OBSTRUCTIVE PULMONARY DISEASE [None]
  - EMPHYSEMA [None]
  - BLOOD PRESSURE FLUCTUATION [None]
  - HELICOBACTER INFECTION [None]
  - LUNG DISORDER [None]
  - CARDIAC FAILURE CONGESTIVE [None]
  - GASTRIC DISORDER [None]
